FAERS Safety Report 10178498 (Version 1)
Quarter: 2014Q2

REPORT INFORMATION
  Report Type: Spontaneous
  Country: FR (occurrence: FR)
  Receive Date: 20140519
  Receipt Date: 20140519
  Transmission Date: 20141212
  Serious: Yes (Hospitalization)
  Sender: FDA-Public Use
  Company Number: FR-JNJFOC-20140503572

PATIENT
  Age: 25 Year
  Sex: Female

DRUGS (8)
  1. STELARA [Suspect]
     Indication: PRODUCT USED FOR UNKNOWN INDICATION
     Route: 058
     Dates: start: 201310, end: 20140130
  2. HUMIRA [Suspect]
     Indication: PRODUCT USED FOR UNKNOWN INDICATION
     Route: 058
     Dates: start: 20140130, end: 201404
  3. SOLUPRED [Suspect]
     Indication: PRODUCT USED FOR UNKNOWN INDICATION
     Route: 048
  4. INEXIUM [Concomitant]
     Route: 065
  5. TRIMEBUTINE [Concomitant]
     Route: 065
  6. MINIDRIL [Concomitant]
     Route: 065
  7. VOGALENE [Concomitant]
     Route: 065
  8. TOPALGIC [Concomitant]
     Route: 065

REACTIONS (2)
  - Congestive cardiomyopathy [Recovering/Resolving]
  - Cardiac failure [Recovering/Resolving]
